FAERS Safety Report 10023800 (Version 1)
Quarter: 2014Q1

REPORT INFORMATION
  Report Type: Spontaneous
  Country: US (occurrence: US)
  Receive Date: 20140320
  Receipt Date: 20140320
  Transmission Date: 20141002
  Serious: Yes (Hospitalization)
  Sender: FDA-Public Use
  Company Number: US-AMGEN-USASP2014019325

PATIENT
  Age: 53 Year
  Sex: Female

DRUGS (2)
  1. ENBREL [Suspect]
     Indication: RHEUMATOID ARTHRITIS
     Dosage: 50 MG, QWK
     Route: 065
     Dates: start: 20080801
  2. METHOTREXATE [Concomitant]
     Dosage: 0.7 ML, QWK AT LEAST 2 YEARS

REACTIONS (9)
  - Arthralgia [Recovered/Resolved]
  - Joint swelling [Recovered/Resolved]
  - Ulcer [Not Recovered/Not Resolved]
  - Scar [Not Recovered/Not Resolved]
  - Scab [Not Recovered/Not Resolved]
  - Cough [Recovered/Resolved]
  - Nasal congestion [Recovered/Resolved]
  - Oropharyngeal pain [Recovered/Resolved]
  - Injection site pain [Not Recovered/Not Resolved]
